FAERS Safety Report 10610797 (Version 1)
Quarter: 2014Q4

REPORT INFORMATION
  Report Type: Spontaneous
  Country: TR (occurrence: TR)
  Receive Date: 20141126
  Receipt Date: 20141126
  Transmission Date: 20150529
  Serious: Yes (Hospitalization)
  Sender: FDA-Public Use
  Company Number: PHHY2014TR150964

PATIENT
  Age: 41 Year
  Sex: Male

DRUGS (2)
  1. WARFARIN [Suspect]
     Active Substance: WARFARIN
     Indication: ANTICOAGULANT THERAPY
     Route: 065
  2. ACETYLSALICYLIC ACID [Suspect]
     Active Substance: ASPIRIN
     Indication: ANTIPLATELET THERAPY
     Dosage: 100 MG, QD
     Route: 065

REACTIONS (8)
  - Groin pain [Recovered/Resolved]
  - Asthenia [Recovered/Resolved]
  - Femoral nerve palsy [Recovered/Resolved]
  - Retroperitoneal haematoma [Recovered/Resolved]
  - Joint contracture [Recovered/Resolved]
  - Paraesthesia [Recovered/Resolved]
  - Abdominal pain lower [Recovered/Resolved]
  - Anaemia [Recovered/Resolved]
